FAERS Safety Report 22121294 (Version 1)
Quarter: 2023Q1

REPORT INFORMATION
  Report Type: Spontaneous
  Country: US (occurrence: None)
  Receive Date: 20230321
  Receipt Date: 20230321
  Transmission Date: 20230417
  Serious: No
  Sender: FDA-Public Use
  Company Number: None

PATIENT
  Age: 76 Year
  Sex: Male
  Weight: 81.65 kg

DRUGS (6)
  1. ABIRATERONE [Suspect]
     Active Substance: ABIRATERONE
     Indication: Prostate cancer
     Dosage: OTHER FREQUENCY : IN THE AM;?
     Route: 048
  2. ACETAMINOPHEN ER [Concomitant]
  3. CALTRATE 600 + D [Concomitant]
  4. GLUCOSAMINE [Concomitant]
  5. PREDNISONE [Concomitant]
  6. VITAMIN C [Concomitant]

REACTIONS (1)
  - Drug ineffective [None]
